FAERS Safety Report 10882025 (Version 1)
Quarter: 2015Q1

REPORT INFORMATION
  Report Type: Spontaneous
  Country: US (occurrence: None)
  Receive Date: 20150225
  Receipt Date: 20150225
  Transmission Date: 20150721
  Serious: Yes (Other)
  Sender: FDA-Public Use
  Company Number: None

PATIENT
  Age: 61 Year
  Sex: Female
  Weight: 70.31 kg

DRUGS (1)
  1. FLAGYL [Suspect]
     Active Substance: METRONIDAZOLE\METRONIDAZOLE HYDROCHLORIDE
     Indication: PAROTID GLAND ENLARGEMENT
     Dosage: GIVEN IN ER ONE DO
     Route: 048
     Dates: start: 20150221, end: 20150221

REACTIONS (4)
  - Pain in extremity [None]
  - Paraesthesia [None]
  - Nausea [None]
  - Presyncope [None]

NARRATIVE: CASE EVENT DATE: 20150221
